FAERS Safety Report 6838688-8 (Version None)
Quarter: 2010Q3

REPORT INFORMATION
  Report Type: 
  Country: None (occurrence: None)
  Receive Date: 20100713
  Receipt Date: 20100706
  Transmission Date: 20110219
  Serious: Yes (Other)
  Sender: FDA-Public Use
  Company Number: US-AMGEN-US340229

PATIENT
  Sex: Male
  Weight: 108.5 kg

DRUGS (20)
  1. NPLATE [Suspect]
     Indication: IDIOPATHIC THROMBOCYTOPENIC PURPURA
     Dates: start: 20080905, end: 20080925
  2. INFLUENZA VACCINE [Concomitant]
  3. CORTICOSTEROIDS [Concomitant]
     Dates: start: 20000901
  4. COUMADIN [Concomitant]
  5. PREDNISONE [Concomitant]
  6. METOPROLOL [Concomitant]
  7. PROPECIA [Concomitant]
  8. PRAVASTATIN [Concomitant]
  9. DIGOXIN [Concomitant]
  10. DETROL [Concomitant]
  11. CENTRUM SILVER [Concomitant]
  12. IRON [Concomitant]
  13. LOVAZA [Concomitant]
  14. NIACIN [Concomitant]
  15. CALCIUM [Concomitant]
  16. GINGKO BILOBA [Concomitant]
  17. VITAMIN C [Concomitant]
  18. METFORMIN [Concomitant]
  19. GLYBURIDE [Concomitant]
  20. SAW PALMETTO [Concomitant]

REACTIONS (20)
  - ANAEMIA [None]
  - ATRIAL FIBRILLATION [None]
  - BLOOD CREATININE INCREASED [None]
  - BLOOD PRESSURE INCREASED [None]
  - BRADYCARDIA [None]
  - BREATH SOUNDS ABNORMAL [None]
  - ELECTROCARDIOGRAM T WAVE AMPLITUDE DECREASED [None]
  - GASTROINTESTINAL HAEMORRHAGE [None]
  - HEART RATE INCREASED [None]
  - LEFT VENTRICULAR DYSFUNCTION [None]
  - LOCAL SWELLING [None]
  - LUNG INFECTION [None]
  - MITRAL VALVE PROLAPSE [None]
  - MUSCULOSKELETAL STIFFNESS [None]
  - NECK INJURY [None]
  - NECK PAIN [None]
  - OEDEMA PERIPHERAL [None]
  - PROTEINURIA [None]
  - SECONDARY IMMUNODEFICIENCY [None]
  - THERAPEUTIC RESPONSE DECREASED [None]
